FAERS Safety Report 4501382-2 (Version None)
Quarter: 2004Q4

REPORT INFORMATION
  Report Type: 
  Country: None (occurrence: None)
  Receive Date: 20041110
  Receipt Date: 20041101
  Transmission Date: 20050328
  Serious: Yes (Other)
  Sender: FDA-Public Use
  Company Number: 2004242575US

PATIENT
  Age: 55 Year
  Sex: Female
  Weight: 50.8 kg

DRUGS (11)
  1. BEXTRA [Suspect]
     Indication: BACK DISORDER
     Dosage: 10 MG, QD , ORAL
     Route: 048
     Dates: start: 20041025, end: 20041027
  2. PHENYTOIN [Suspect]
     Indication: CONVULSION
     Dosage: 100 MG, QD, ORAL
     Route: 048
  3. THEOPHYLLINE [Concomitant]
  4. ATROVENT [Concomitant]
  5. FLOVENT [Concomitant]
  6. SEREVENT [Concomitant]
  7. POTASSIUM [Concomitant]
  8. VITAMIN D [Concomitant]
  9. CALCIUM WITH VITAMIN D (CALCIUM PHOSPHATE, CALCIUM SODIUM LACTATE, ERG [Concomitant]
  10. CATAPRES [Concomitant]
  11. ZOPONEX [Concomitant]

REACTIONS (4)
  - CONDITION AGGRAVATED [None]
  - DRUG INTERACTION [None]
  - GRAND MAL CONVULSION [None]
  - LOSS OF CONSCIOUSNESS [None]
